FAERS Safety Report 8296135-6 (Version None)
Quarter: 2012Q2

REPORT INFORMATION
  Report Type: 
  Country: None (occurrence: None)
  Receive Date: 20120418
  Receipt Date: 20120410
  Transmission Date: 20120825
  Serious: Yes (Other)
  Sender: FDA-Public Use
  Company Number: GB-VIIV HEALTHCARE LIMITED-B0764796A

PATIENT
  Sex: Female
  Weight: 73 kg

DRUGS (10)
  1. KALETRA [Concomitant]
     Route: 048
  2. ASPIRIN [Concomitant]
     Dosage: 75MG PER DAY
     Route: 048
  3. VALACICLOVIR [Concomitant]
     Route: 048
  4. FOLIC ACID [Concomitant]
     Dosage: 5MG PER DAY
     Route: 048
  5. TENOFOVIR [Concomitant]
     Route: 048
  6. DAPSONE [Concomitant]
     Dosage: 100MG PER DAY
     Route: 048
  7. LAMIVUDINE (EPIVIR HBV) [Concomitant]
     Route: 048
  8. PRAVASTATIN [Concomitant]
     Dosage: 16MG PER DAY
     Route: 048
  9. ABACAVIR SULFATE [Suspect]
     Indication: PRODUCT USED FOR UNKNOWN INDICATION
     Route: 065
  10. CLOPIDOGREL [Concomitant]
     Route: 048

REACTIONS (1)
  - MYOCARDIAL INFARCTION [None]
